FAERS Safety Report 9027857 (Version 1)
Quarter: 2013Q1

REPORT INFORMATION
  Report Type: Spontaneous
  Country: FR (occurrence: FR)
  Receive Date: 20130124
  Receipt Date: 20130124
  Transmission Date: 20140127
  Serious: Yes (Other)
  Sender: FDA-Public Use
  Company Number: FR-AMGEN-FRASP2013003138

PATIENT
  Age: 73 Year
  Sex: Female

DRUGS (12)
  1. ARANESP [Suspect]
     Indication: PRODUCT USED FOR UNKNOWN INDICATION
     Dosage: 500 MUG, Q3WK
     Route: 058
     Dates: start: 20120602
  2. CALCIPARINE [Suspect]
     Indication: PRODUCT USED FOR UNKNOWN INDICATION
     Dosage: 0.45 IU, BID
     Route: 058
     Dates: start: 20120818, end: 20120830
  3. VALACICLOVIR [Concomitant]
     Dosage: 500 MG, BID
     Route: 048
     Dates: end: 201209
  4. CORDARONE [Concomitant]
     Dosage: 200 MG, BID
     Route: 048
     Dates: start: 20120818
  5. BACTRIM [Concomitant]
     Dosage: 3 TABLET A WEEK
     Route: 048
     Dates: start: 201206, end: 20120910
  6. TRANSIPEG                          /00754501/ [Concomitant]
     Dosage: 2 PACKAGES A DAY
  7. EUPANTOL [Concomitant]
     Dosage: 1 TABLET A DAY
     Route: 048
  8. PERFALGAN [Concomitant]
     Dosage: 3 G, QD
  9. CYCLOPHOSPHAMIDE [Concomitant]
     Indication: B-CELL LYMPHOMA
     Dosage: UNK
  10. DOXORUBICIN [Concomitant]
     Indication: B-CELL LYMPHOMA
  11. ETOPOSIDE [Concomitant]
     Indication: B-CELL LYMPHOMA
  12. PREDNISONE [Concomitant]
     Indication: B-CELL LYMPHOMA

REACTIONS (2)
  - Drug ineffective [Recovering/Resolving]
  - Deep vein thrombosis [Recovering/Resolving]
